FAERS Safety Report 23660931 (Version 1)
Quarter: 2024Q1

REPORT INFORMATION
  Report Type: Report from Study
  Country: HU (occurrence: HU)
  Receive Date: 20240322
  Receipt Date: 20240322
  Transmission Date: 20240410
  Serious: Yes (Hospitalization)
  Sender: FDA-Public Use
  Company Number: HU-ABBVIE-5687626

PATIENT
  Age: 69 Year
  Sex: Male

DRUGS (4)
  1. CARBIDOPA\LEVODOPA [Suspect]
     Active Substance: CARBIDOPA\LEVODOPA
     Indication: Parkinson^s disease
     Dosage: MORNING DOSE: 5.0 ML; CONTINUOUS DOSE: 4.5 ML/HOUR; EXTRA DOSE: 1.0 ML
     Route: 050
     Dates: start: 20220412
  2. CARBIDOPA\LEVODOPA [Suspect]
     Active Substance: CARBIDOPA\LEVODOPA
  3. CARBIDOPA\ENTACAPONE\LEVODOPA [Suspect]
     Active Substance: CARBIDOPA\ENTACAPONE\LEVODOPA
     Indication: Parkinson^s disease
     Dosage: TIME INTERVAL: 0.33333333 DAYS: 200 MG LEVODOPA, 50 MG CARBIDOPA, 200 MG ENTACAPONE /TABLET?LEVOD...
     Route: 048
     Dates: start: 2015
  4. CYANOCOBALAMIN [Concomitant]
     Active Substance: CYANOCOBALAMIN
     Indication: Prophylaxis
     Dosage: CYANOCOBALAMIN (VITAMIN B12)?FORM STRENGTH: 1 MILLIGRAM/MILLILITERS
     Route: 030
     Dates: start: 202204

REACTIONS (3)
  - Overdose [Recovered/Resolved]
  - Hallucination [Not Recovered/Not Resolved]
  - Persecutory delusion [Not Recovered/Not Resolved]

NARRATIVE: CASE EVENT DATE: 20240313
